FAERS Safety Report 8510310 (Version 3)
Quarter: 2012Q4

REPORT INFORMATION
  Report Type: Spontaneous
  Country: US (occurrence: None)
  Receive Date: 20120309
  Receipt Date: 20120907
  Transmission Date: 20130627
  Serious: Yes (Other)
  Sender: FDA-Public Use
  Company Number: TH-2012-00008

PATIENT
  Age: 59 Year
  Sex: Female
  Weight: 69 kg

DRUGS (1)
  1. EGRIFTA [Suspect]
     Indication: LIPODYSTROPHY ACQUIRED
     Route: 058
     Dates: start: 20110417, end: 201111

REACTIONS (1)
  - NEURODERMATITIS [None]
